FAERS Safety Report 11048722 (Version 1)
Quarter: 2015Q2

REPORT INFORMATION
  Report Type: Spontaneous
  Country: CN (occurrence: CN)
  Receive Date: 20150420
  Receipt Date: 20150420
  Transmission Date: 20150821
  Serious: Yes (Other)
  Sender: FDA-Public Use
  Company Number: CN-JNJFOC-20150409297

PATIENT
  Age: 12 Month
  Sex: Female
  Weight: 13 kg

DRUGS (3)
  1. MOTRIN [Suspect]
     Active Substance: IBUPROFEN
     Indication: RHINORRHOEA
     Route: 048
     Dates: start: 20141102, end: 20141102
  2. MOTRIN [Suspect]
     Active Substance: IBUPROFEN
     Indication: PYREXIA
     Route: 048
     Dates: start: 20141102, end: 20141102
  3. MOTRIN [Suspect]
     Active Substance: IBUPROFEN
     Indication: COUGH
     Route: 048
     Dates: start: 20141102, end: 20141102

REACTIONS (3)
  - Bronchitis [Recovered/Resolved]
  - Off label use [Unknown]
  - Angioedema [Recovered/Resolved]

NARRATIVE: CASE EVENT DATE: 20141102
